FAERS Safety Report 24696241 (Version 1)
Quarter: 2024Q4

REPORT INFORMATION
  Report Type: Spontaneous
  Country: CN (occurrence: CN)
  Receive Date: 20241204
  Receipt Date: 20241204
  Transmission Date: 20250115
  Serious: Yes (Disabling)
  Sender: JIANGSU HENGRUI MEDICINE CO., LTD.
  Company Number: CN-Jiangsu Hengrui Medicine Co., Ltd.-2166449

PATIENT
  Age: 63 Year
  Sex: Male
  Weight: 49 kg

DRUGS (2)
  1. IRINOTECAN HYDROCHLORIDE [Suspect]
     Active Substance: IRINOTECAN HYDROCHLORIDE
     Indication: Lung neoplasm malignant
     Dates: start: 20241013, end: 20241031
  2. SINTILIMAB [Suspect]
     Active Substance: SINTILIMAB
     Dates: start: 20241013, end: 20241013

REACTIONS (1)
  - Myelitis transverse [Not Recovered/Not Resolved]

NARRATIVE: CASE EVENT DATE: 20241109
